FAERS Safety Report 8092898-3 (Version None)
Quarter: 2012Q1

REPORT INFORMATION
  Report Type: 
  Country: None (occurrence: None)
  Receive Date: 20120128
  Receipt Date: 20110803
  Transmission Date: 20120608
  Serious: No
  Sender: FDA-Public Use
  Company Number: US-ABBOTT-11P-163-0844199-00

PATIENT
  Sex: Female
  Weight: 108.96 kg

DRUGS (11)
  1. FLONASE [Concomitant]
     Indication: HYPERSENSITIVITY
  2. TRICOR [Concomitant]
     Indication: BLOOD CHOLESTEROL INCREASED
  3. HYDROCODONE BITARTRATE [Concomitant]
     Indication: PAIN
  4. PREMPRO [Concomitant]
     Indication: PRODUCT USED FOR UNKNOWN INDICATION
  5. ADVAIR DISKUS 100/50 [Concomitant]
     Indication: ASTHMA
  6. ASPIRIN [Concomitant]
     Indication: PRODUCT USED FOR UNKNOWN INDICATION
  7. DICLOFENAC [Concomitant]
     Indication: PAIN
  8. HUMIRA [Suspect]
     Indication: PSORIASIS
  9. IBUPROFEN [Concomitant]
     Indication: PAIN
  10. HUMIRA [Suspect]
     Indication: PSORIATIC ARTHROPATHY
     Dates: start: 20110601
  11. LEVOCETIRIZINE DIHYDROCHLORIDE [Concomitant]
     Indication: ANTIALLERGIC THERAPY

REACTIONS (3)
  - PRURITUS [None]
  - RASH MACULAR [None]
  - SKIN EXFOLIATION [None]
